FAERS Safety Report 7968978-7 (Version None)
Quarter: 2011Q4

REPORT INFORMATION
  Report Type: 
  Country: None (occurrence: None)
  Receive Date: 20111209
  Receipt Date: 20111202
  Transmission Date: 20120403
  Serious: Yes (Hospitalization, Other)
  Sender: FDA-Public Use
  Company Number: JP-CEPHALON-2011002610

PATIENT
  Sex: Male
  Weight: 69 kg

DRUGS (5)
  1. RITUXIMAB [Concomitant]
     Route: 042
     Dates: start: 20110120, end: 20110120
  2. BEZAFIBRATE [Concomitant]
  3. BENDAMUSTINE HCL [Suspect]
     Indication: B-CELL LYMPHOMA
     Route: 042
     Dates: start: 20101215
  4. RITUXIMAB [Concomitant]
     Route: 042
     Dates: start: 20101214, end: 20110120
  5. PIOGLITAZONE HYDROCHLORIDE [Concomitant]
     Dates: end: 20110129

REACTIONS (6)
  - WHITE BLOOD CELL COUNT DECREASED [None]
  - PLATELET COUNT DECREASED [None]
  - NEUTROPHIL COUNT DECREASED [None]
  - CYTOMEGALOVIRUS INFECTION [None]
  - LYMPHOCYTE COUNT DECREASED [None]
  - ANAEMIA [None]
